FAERS Safety Report 10477276 (Version 1)
Quarter: 2014Q3

REPORT INFORMATION
  Report Type: Spontaneous
  Country: US (occurrence: None)
  Receive Date: 20140925
  Receipt Date: 20140925
  Transmission Date: 20150326
  Serious: Yes (Death)
  Sender: FDA-Public Use
  Company Number: None

PATIENT
  Age: 47 Year
  Sex: Female

DRUGS (2)
  1. ARIXTRA [Suspect]
     Active Substance: FONDAPARINUX SODIUM
     Route: 058
  2. ASPIRIN 81 MG [Suspect]
     Active Substance: ASPIRIN
     Dosage: 2 TABLETS, QD, ORAL
     Route: 048

REACTIONS (1)
  - Haemorrhage intracranial [None]

NARRATIVE: CASE EVENT DATE: 20140619
